FAERS Safety Report 18785236 (Version 1)
Quarter: 2021Q1

REPORT INFORMATION
  Report Type: Spontaneous
  Country: CN (occurrence: CN)
  Receive Date: 20210125
  Receipt Date: 20210125
  Transmission Date: 20210419
  Serious: Yes (Other)
  Sender: FDA-Public Use
  Company Number: CN-ELI_LILLY_AND_COMPANY-CN202101005587

PATIENT
  Sex: Female
  Weight: 74 kg

DRUGS (1)
  1. ALIMTA [Suspect]
     Active Substance: PEMETREXED DISODIUM
     Indication: BREAST CANCER
     Dosage: 1 G, UNKNOWN
     Route: 041
     Dates: start: 20201111

REACTIONS (2)
  - Drug-induced liver injury [Recovering/Resolving]
  - Hepatitis C [Recovering/Resolving]
